FAERS Safety Report 8491972-7 (Version None)
Quarter: 2012Q3

REPORT INFORMATION
  Report Type: 
  Country: None (occurrence: None)
  Receive Date: 20120706
  Receipt Date: 20120627
  Transmission Date: 20120928
  Serious: Yes (Hospitalization)
  Sender: FDA-Public Use
  Company Number: JP-ASTRAZENECA-2012SE45351

PATIENT
  Age: 60 Year
  Sex: Male
  Weight: 82 kg

DRUGS (3)
  1. CANDESARTAN CILEXETIL AND HYDROCHLOROTHIAZIDE [Suspect]
     Indication: HYPERTENSION
     Dosage: 1 DF DAILY
     Route: 048
     Dates: start: 20110121, end: 20110201
  2. AMLODIPINE [Concomitant]
     Route: 048
     Dates: start: 20080905
  3. BISOPROLOL FUMARATE [Concomitant]
     Route: 048
     Dates: start: 20080822

REACTIONS (1)
  - CEREBRAL INFARCTION [None]
